FAERS Safety Report 4450100-5 (Version None)
Quarter: 2004Q3

REPORT INFORMATION
  Report Type: 
  Country: None (occurrence: None)
  Receive Date: 20040915
  Receipt Date: 20031219
  Transmission Date: 20050211
  Serious: Yes (Hospitalization)
  Sender: FDA-Public Use
  Company Number: BR-ROCHE-354526

PATIENT
  Age: 26 Year
  Sex: Male
  Weight: 48.5 kg

DRUGS (33)
  1. MYCOPHENOLATE MOFETIL [Suspect]
     Route: 048
     Dates: start: 20030827, end: 20031027
  2. MYCOPHENOLATE MOFETIL [Suspect]
     Route: 048
     Dates: start: 20031028, end: 20031119
  3. MYCOPHENOLATE MOFETIL [Suspect]
     Route: 048
     Dates: start: 20031120
  4. DACLIZUMAB [Suspect]
     Route: 042
     Dates: start: 20030827, end: 20030827
  5. DACLIZUMAB [Suspect]
     Route: 042
     Dates: start: 20030911, end: 20031008
  6. TACROLIMUS [Suspect]
     Route: 048
     Dates: start: 20030827, end: 20030904
  7. TACROLIMUS [Suspect]
     Route: 048
     Dates: start: 20030905, end: 20030915
  8. TACROLIMUS [Suspect]
     Route: 048
     Dates: start: 20030916, end: 20031027
  9. TACROLIMUS [Suspect]
     Route: 048
     Dates: start: 20031028, end: 20031105
  10. TACROLIMUS [Suspect]
     Route: 048
     Dates: start: 20031106, end: 20031201
  11. TACROLIMUS [Suspect]
     Route: 048
     Dates: start: 20031202, end: 20031211
  12. TACROLIMUS [Suspect]
     Route: 048
     Dates: start: 20031212, end: 20040512
  13. TACROLIMUS [Suspect]
     Route: 048
     Dates: start: 20040513
  14. TACROLIMUS [Suspect]
     Route: 048
     Dates: start: 20040707
  15. TACROLIMUS [Suspect]
     Route: 048
     Dates: start: 20040906
  16. PREDNISONE [Suspect]
     Route: 048
     Dates: start: 20030909, end: 20030911
  17. PREDNISONE [Suspect]
     Route: 048
     Dates: start: 20030912, end: 20031012
  18. PREDNISONE [Suspect]
     Route: 048
     Dates: start: 20031013, end: 20031201
  19. PREDNISONE [Suspect]
     Route: 048
     Dates: start: 20031202
  20. RANITIDINE [Concomitant]
     Indication: DRUG USE FOR UNKNOWN INDICATION
     Route: 048
     Dates: start: 20030827
  21. OMEPRAZOLE [Concomitant]
     Dosage: FREQUENCY ^MID^.
     Route: 048
     Dates: start: 20030829
  22. NIFEDIPINE [Concomitant]
     Route: 048
     Dates: start: 20030828
  23. PROPRANOLOL [Concomitant]
     Route: 048
     Dates: start: 20030828
  24. CLONIDINE HCL [Concomitant]
     Route: 048
     Dates: start: 20030828
  25. CIPROFLOXACIN [Concomitant]
     Route: 048
     Dates: start: 20030908
  26. MINOXIDIL [Concomitant]
     Dosage: FREQUENCY ^MID^.
     Route: 048
     Dates: start: 20030914
  27. NYSTATINE [Concomitant]
     Route: 048
     Dates: start: 20030828
  28. HYDRALAZINE HCL [Concomitant]
     Route: 048
     Dates: start: 20030912
  29. DIAZEPAM [Concomitant]
     Indication: DRUG USE FOR UNKNOWN INDICATION
     Dosage: FREQUENCY ^MID^.
     Route: 048
     Dates: start: 20030830
  30. METHYLPREDNISOLONE [Suspect]
     Route: 065
     Dates: start: 20030827, end: 20030827
  31. METHYLPREDNISOLONE [Suspect]
     Route: 065
     Dates: start: 20030828, end: 20030828
  32. METHYLPREDNISOLONE [Suspect]
     Route: 065
     Dates: start: 20030829, end: 20030830
  33. METHYLPREDNISOLONE [Suspect]
     Route: 065
     Dates: start: 20030915, end: 20030920

REACTIONS (4)
  - FISTULA [None]
  - GRAFT COMPLICATION [None]
  - PSEUDOMONAS INFECTION [None]
  - URINARY TRACT INFECTION [None]
